FAERS Safety Report 23707508 (Version 5)
Quarter: 2024Q3

REPORT INFORMATION
  Report Type: Spontaneous
  Country: KR (occurrence: KR)
  Receive Date: 20240404
  Receipt Date: 20240716
  Transmission Date: 20241017
  Serious: Yes (Hospitalization, Other)
  Sender: ACCORD
  Company Number: KR-Accord-409867-02

PATIENT
  Age: 77 Year
  Sex: Male
  Weight: 46.0 kg

DRUGS (65)
  1. CARBOPLATIN [Suspect]
     Active Substance: CARBOPLATIN
     Indication: Non-small cell lung cancer metastatic
     Dosage: 5 AUC, 1Q3W
     Route: 042
     Dates: start: 20240115, end: 20240115
  2. PEMETREXED [Suspect]
     Active Substance: PEMETREXED
     Indication: Non-small cell lung cancer metastatic
     Dosage: 1Q3W
     Route: 042
     Dates: start: 20240115, end: 20240115
  3. PEMBROLIZUMAB [Suspect]
     Active Substance: PEMBROLIZUMAB
     Indication: Non-small cell lung cancer metastatic
     Dosage: 1Q3W
     Route: 042
     Dates: start: 20240115, end: 20240206
  4. ALBUMIN HUMAN [Concomitant]
     Active Substance: ALBUMIN HUMAN
     Dosage: 20 PERCENT
     Dates: start: 20240125, end: 20240125
  5. DEXTROSE [Concomitant]
     Active Substance: DEXTROSE\DEXTROSE MONOHYDRATE
     Dosage: 5 PERCENT
     Dates: start: 20240126, end: 20240128
  6. SODIUM BICARBONATE [Concomitant]
     Active Substance: SODIUM BICARBONATE
     Dates: start: 20240126, end: 20240207
  7. MAXIPIME [Concomitant]
     Active Substance: CEFEPIME HYDROCHLORIDE
     Dates: start: 20240126, end: 20240131
  8. METRONIDAZOLE [Concomitant]
     Active Substance: METRONIDAZOLE
     Dates: start: 20240125, end: 20240131
  9. TEICONIN [Concomitant]
     Dates: start: 20240126, end: 20240126
  10. BIOFLOR [Concomitant]
     Dates: start: 20240129
  11. CITOPCIN [Concomitant]
     Dates: start: 20240131, end: 20240304
  12. AMOXICILLIN\CLAVULANATE POTASSIUM [Concomitant]
     Active Substance: AMOXICILLIN\CLAVULANATE POTASSIUM
     Dates: start: 20240131, end: 20240228
  13. SODIUM CHLORIDE [Concomitant]
     Active Substance: SODIUM CHLORIDE
     Dosage: 0.45 PERCENT
     Dates: start: 20240128, end: 20240128
  14. CALCIUM POLYSTYRENE SULFONATE [Concomitant]
     Active Substance: CALCIUM POLYSTYRENE SULFONATE
     Dates: start: 20240126, end: 20240126
  15. CALCIUM CARBONATE\CHOLECALCIFEROL [Concomitant]
     Active Substance: CALCIUM CARBONATE\CHOLECALCIFEROL
     Dates: start: 20240122, end: 20240129
  16. MEGESTROL ACETATE [Concomitant]
     Active Substance: MEGESTROL ACETATE
     Dates: start: 20240128
  17. HUMULIN R [Concomitant]
     Active Substance: INSULIN HUMAN
     Dates: start: 20240126, end: 20240131
  18. PROPACETAMOL HYDROCHLORIDE [Concomitant]
     Active Substance: PROPACETAMOL HYDROCHLORIDE
     Dates: start: 20240128, end: 20240128
  19. ATIVAN [Concomitant]
     Active Substance: LORAZEPAM
     Dates: start: 20240127, end: 20240127
  20. QUETIAPINE FUMARATE [Concomitant]
     Active Substance: QUETIAPINE FUMARATE
     Dates: start: 20240128
  21. NEUPOGEN [Concomitant]
     Active Substance: FILGRASTIM
     Dates: start: 20240126, end: 20240126
  22. ULTRACET [Concomitant]
     Active Substance: ACETAMINOPHEN\TRAMADOL HYDROCHLORIDE
     Dosage: ER SEMI
     Dates: start: 20231217
  23. NALOXONE HYDROCHLORIDE\OXYCODONE HYDROCHLORIDE [Concomitant]
     Active Substance: NALOXONE HYDROCHLORIDE\OXYCODONE HYDROCHLORIDE
     Dates: start: 20240103
  24. OXYCODONE HYDROCHLORIDE [Concomitant]
     Active Substance: OXYCODONE HYDROCHLORIDE
     Dates: start: 20240103
  25. FIMASARTAN [Concomitant]
     Active Substance: FIMASARTAN
     Dates: start: 20050101
  26. MIRABEGRON [Concomitant]
     Active Substance: MIRABEGRON
     Dates: start: 20170101
  27. TAMSULOSIN HYDROCHLORIDE [Concomitant]
     Active Substance: TAMSULOSIN HYDROCHLORIDE
     Dates: start: 20170101
  28. MAGNESIUM OXIDE [Concomitant]
     Active Substance: MAGNESIUM OXIDE
     Dates: start: 20231219
  29. LACTULOSE [Concomitant]
     Active Substance: LACTULOSE
     Dates: start: 20231227
  30. FERROUS SULFATE [Concomitant]
     Active Substance: FERROUS SULFATE
     Dates: start: 20231227
  31. LEVOTHYROXINE SODIUM [Concomitant]
     Active Substance: LEVOTHYROXINE SODIUM
     Dates: start: 20231223
  32. FOLIC ACID [Concomitant]
     Active Substance: FOLIC ACID
     Dates: start: 20240108
  33. LANOBIN [Concomitant]
     Dates: start: 20240108
  34. ALOXI [Concomitant]
     Active Substance: PALONOSETRON HYDROCHLORIDE
     Dates: start: 20240115
  35. DEXAMETHASONE [Concomitant]
     Active Substance: DEXAMETHASONE
     Dates: start: 20240115
  36. EMEND [Concomitant]
     Active Substance: APREPITANT
     Dates: start: 20240115
  37. TAPOCIN [Concomitant]
     Dates: start: 20240127, end: 20240131
  38. NEXIUM [Concomitant]
     Active Substance: ESOMEPRAZOLE MAGNESIUM
     Dates: start: 20240125, end: 20240131
  39. TRAMADOL HYDROCHLORIDE [Concomitant]
     Active Substance: TRAMADOL HYDROCHLORIDE
     Dates: start: 20240213
  40. FENTANYL [Concomitant]
     Active Substance: FENTANYL\FENTANYL CITRATE
     Dates: start: 20240219
  41. MORPHINE SULFATE [Concomitant]
     Active Substance: MORPHINE SULFATE
     Dates: start: 20240225
  42. NORVASC [Concomitant]
     Active Substance: AMLODIPINE BESYLATE
     Dates: start: 20240222
  43. COZAAR [Concomitant]
     Active Substance: LOSARTAN POTASSIUM
     Dates: start: 20240205, end: 20240208
  44. HYGROTON [Concomitant]
     Active Substance: CHLORTHALIDONE
     Dates: start: 20240205, end: 20240208
  45. TANTUM [Concomitant]
     Active Substance: BENZYDAMINE HYDROCHLORIDE
     Dates: start: 20240212
  46. NYSTATIN [Concomitant]
     Active Substance: NYSTATIN
     Dates: start: 20240212
  47. HEXAMIDINE DIISETHIONATE [Concomitant]
     Active Substance: HEXAMIDINE DIISETHIONATE
     Dates: start: 20240214, end: 20240214
  48. ACETYLCYSTEINE [Concomitant]
     Active Substance: ACETYLCYSTEINE
     Dates: start: 20240214, end: 20240417
  49. LASIX [Concomitant]
     Active Substance: FUROSEMIDE
     Dates: start: 20240218, end: 20240218
  50. XANAX [Concomitant]
     Active Substance: ALPRAZOLAM
     Dates: start: 20240221
  51. DULCOLAX [Concomitant]
     Dates: start: 20240225
  52. HYALURONATE SODIUM [Concomitant]
     Active Substance: HYALURONATE SODIUM
     Dates: start: 20240226, end: 20240226
  53. GLYCERIN [Concomitant]
     Active Substance: GLYCERIN
     Dates: start: 20240307, end: 20240307
  54. ERDOSTEINE [Concomitant]
     Active Substance: ERDOSTEINE
     Dates: start: 20240103
  55. VASELINE PURE [Concomitant]
     Active Substance: PETROLATUM
     Dates: start: 20240215
  56. METHYLPREDNISOLONE ACEPONATE [Concomitant]
     Active Substance: METHYLPREDNISOLONE ACEPONATE
     Dates: start: 20240216
  57. PREDNISOLONE [Concomitant]
     Active Substance: PREDNISOLONE
     Dates: start: 20240219, end: 20240219
  58. MEDISOLU [Concomitant]
     Dates: start: 20240220, end: 20240227
  59. MUPIROCIN [Concomitant]
     Active Substance: MUPIROCIN
     Dates: start: 20240226
  60. ISOCONAZOLE NITRATE [Concomitant]
     Active Substance: ISOCONAZOLE NITRATE
     Dates: start: 20240226
  61. CHLORPHENIRAMINE MALEATE [Concomitant]
     Active Substance: CHLORPHENIRAMINE MALEATE
     Dates: start: 20240214
  62. EFLAPEGRASTIM [Concomitant]
     Active Substance: EFLAPEGRASTIM
     Dates: start: 20240207, end: 20240207
  63. HYSONE [Concomitant]
     Dates: start: 20240315, end: 20240318
  64. CARBOPLATIN [Suspect]
     Active Substance: CARBOPLATIN
     Indication: Non-small cell lung cancer metastatic
     Dosage: 4 AUC, 1Q3W
     Route: 042
     Dates: start: 20240206, end: 20240206
  65. PEMETREXED [Suspect]
     Active Substance: PEMETREXED
     Indication: Non-small cell lung cancer metastatic
     Dosage: 1Q3W
     Route: 042
     Dates: start: 20240206, end: 20240206

REACTIONS (1)
  - Pancytopenia [Recovered/Resolved]

NARRATIVE: CASE EVENT DATE: 20240212
